FAERS Safety Report 15901041 (Version 2)
Quarter: 2020Q1

REPORT INFORMATION
  Report Type: Spontaneous
  Country: US (occurrence: US)
  Receive Date: 20190201
  Receipt Date: 20200122
  Transmission Date: 20200409
  Serious: Yes (Other)
  Sender: FDA-Public Use
  Company Number: US-PFIZER INC-2018024412

PATIENT
  Age: 13 Year
  Sex: Male

DRUGS (3)
  1. GENOTROPIN [Suspect]
     Active Substance: SOMATROPIN
     Indication: CYTOGENETIC ABNORMALITY
     Dosage: 2.2 MG, DAILY
     Dates: start: 20150218
  2. GENOTROPIN [Suspect]
     Active Substance: SOMATROPIN
     Indication: HYPOGONADISM
  3. TESTOSTERONE. [Concomitant]
     Active Substance: TESTOSTERONE
     Dosage: 100 MG, EVERY 2 WEEKS

REACTIONS (10)
  - Erectile dysfunction [Unknown]
  - Libido decreased [Unknown]
  - Product dose omission [Unknown]
  - Eosinophil count increased [Unknown]
  - Blood chloride increased [Unknown]
  - Product use in unapproved indication [Unknown]
  - Mean cell haemoglobin concentration decreased [Unknown]
  - Monocyte count increased [Unknown]
  - Mean platelet volume increased [Unknown]
  - Immunoglobulins increased [Unknown]

NARRATIVE: CASE EVENT DATE: 20150218
